FAERS Safety Report 11596482 (Version 1)
Quarter: 2015Q4

REPORT INFORMATION
  Report Type: Spontaneous
  Country: None (occurrence: None)
  Receive Date: 20151005
  Receipt Date: 20151005
  Transmission Date: 20160304
  Serious: Yes (Other)
  Sender: FDA-Public Use
  Company Number: None

PATIENT
  Age: 67 Year
  Sex: Female
  Weight: 69.4 kg

DRUGS (2)
  1. CISPLATIN 50 MG [Suspect]
     Active Substance: CISPLATIN
     Indication: LUNG NEOPLASM MALIGNANT
     Dosage: DI D8 Q21DAYS?9-30-15 1ST DOSE
     Dates: start: 20150930
  2. ABRAXANE [Concomitant]
     Active Substance: PACLITAXEL

REACTIONS (4)
  - Dyspnoea [None]
  - Cough [None]
  - Chest discomfort [None]
  - Respiratory tract congestion [None]

NARRATIVE: CASE EVENT DATE: 20150930
